FAERS Safety Report 12834299 (Version 1)
Quarter: 2016Q4

REPORT INFORMATION
  Report Type: Spontaneous
  Country: GB (occurrence: GB)
  Receive Date: 20161010
  Receipt Date: 20161010
  Transmission Date: 20170207
  Serious: Yes (Hospitalization, Other)
  Sender: FDA-Public Use
  Company Number: GB-SHIRE-GB201613683

PATIENT
  Age: 11 Year
  Sex: Male
  Weight: 32.85 kg

DRUGS (3)
  1. CIRCADIN [Concomitant]
     Active Substance: MELATONIN
     Indication: INSOMNIA
     Dosage: 4 MG, UNKNOWN
     Route: 048
  2. ELVANSE [Suspect]
     Active Substance: LISDEXAMFETAMINE DIMESYLATE
     Indication: ATTENTION DEFICIT/HYPERACTIVITY DISORDER
     Dosage: 20 MG, 1X/DAY:QD
     Route: 048
     Dates: start: 20160911, end: 20160911
  3. BIO-MELATONIN [Concomitant]
     Indication: INSOMNIA
     Dosage: 9 MG, UNKNOWN
     Route: 048
     Dates: end: 20160905

REACTIONS (7)
  - Tongue spasm [Recovered/Resolved]
  - Tic [Recovered/Resolved]
  - Dyskinesia [Recovered/Resolved]
  - Heart rate increased [Recovered/Resolved]
  - Flushing [Recovered/Resolved]
  - Affect lability [Recovered/Resolved]
  - Foaming at mouth [Recovered/Resolved]

NARRATIVE: CASE EVENT DATE: 20160911
